FAERS Safety Report 8972226 (Version 1)
Quarter: 2012Q4

REPORT INFORMATION
  Report Type: Spontaneous
  Country: US (occurrence: None)
  Receive Date: 20121211
  Receipt Date: 20121211
  Transmission Date: 20130627
  Serious: No
  Sender: FDA-Public Use
  Company Number: 2012MA013881

PATIENT
  Age: 3 Year
  Sex: Male
  Weight: 15.88 kg

DRUGS (1)
  1. IBUPROFEN [Suspect]
     Route: 048
     Dates: start: 20121206, end: 20121206

REACTIONS (2)
  - Febrile convulsion [None]
  - Product physical issue [None]
